FAERS Safety Report 4312885-8 (Version None)
Quarter: 2004Q1

REPORT INFORMATION
  Report Type: 
  Country: None (occurrence: None)
  Receive Date: 20040304
  Receipt Date: 20040224
  Transmission Date: 20041129
  Serious: Yes (Life-Threatening, Other)
  Sender: FDA-Public Use
  Company Number: 2004-02-1616

PATIENT
  Age: 41 Year
  Sex: Male
  Weight: 70 kg

DRUGS (13)
  1. PEG-INTRON [Suspect]
     Indication: HEPATITIS B
     Dosage: 1.5 UG/KG QW; SUBCUTANEOUS
     Route: 058
     Dates: start: 20031201, end: 20040105
  2. RIFADIN [Suspect]
     Indication: BONE TUBERCULOSIS
     Dosage: UNK-600 MG*QD; ORAL (SEE IMAGE)
     Route: 048
     Dates: start: 20030711, end: 20031112
  3. RIFADIN [Suspect]
     Indication: BONE TUBERCULOSIS
     Dosage: UNK-600 MG*QD; ORAL (SEE IMAGE)
     Route: 048
     Dates: start: 20030711, end: 20040106
  4. RIFADIN [Suspect]
     Indication: BONE TUBERCULOSIS
     Dosage: UNK-600 MG*QD; ORAL (SEE IMAGE)
     Route: 048
     Dates: start: 20031119, end: 20040106
  5. CORTANCYL [Suspect]
     Indication: BONE TUBERCULOSIS
     Dosage: 60-10 MG/KG*; ORAL (SEE IMAGE)
     Route: 048
     Dates: start: 20031203, end: 20031201
  6. CORTANCYL [Suspect]
     Indication: BONE TUBERCULOSIS
     Dosage: 60-10 MG/KG*; ORAL (SEE IMAGE)
     Route: 048
     Dates: start: 20030711, end: 20031202
  7. CORTANCYL [Suspect]
     Indication: BONE TUBERCULOSIS
     Dosage: 60-10 MG/KG*; ORAL (SEE IMAGE)
     Route: 048
     Dates: start: 20030711, end: 20040101
  8. CORTANCYL [Suspect]
     Indication: BONE TUBERCULOSIS
     Dosage: 60-10 MG/KG*; ORAL (SEE IMAGE)
     Route: 048
     Dates: start: 20031201, end: 20040101
  9. CIPROFLOXACIN [Suspect]
     Indication: BONE TUBERCULOSIS
     Dosage: 1000 MG QD; ORAL
     Route: 048
     Dates: start: 20031119, end: 20031210
  10. MOXIFLOXACIN HCL [Suspect]
     Indication: BONE TUBERCULOSIS
     Dosage: UNKNOWN; ORAL
     Route: 048
     Dates: start: 20031211, end: 20040101
  11. MYAMBUTOL [Concomitant]
  12. ISONIAZID [Concomitant]
  13. ... [Concomitant]

REACTIONS (4)
  - CYTOLYTIC HEPATITIS [None]
  - DRUG INTERACTION [None]
  - HEPATITIS B [None]
  - HYPERBILIRUBINAEMIA [None]
